FAERS Safety Report 16681708 (Version 1)
Quarter: 2019Q3

REPORT INFORMATION
  Report Type: Spontaneous
  Country: US (occurrence: US)
  Receive Date: 20190808
  Receipt Date: 20190808
  Transmission Date: 20191004
  Serious: No
  Sender: FDA-Public Use
  Company Number: US-TEVA-2019-US-1088193

PATIENT
  Sex: Female

DRUGS (1)
  1. NEOMYCIN SULFATE TABLETS USP [Suspect]
     Active Substance: NEOMYCIN SULFATE
     Indication: GASTROINTESTINAL BACTERIAL OVERGROWTH
     Dosage: 500 MG
     Route: 065
     Dates: start: 20190731

REACTIONS (2)
  - Tinnitus [Unknown]
  - Wrong technique in product usage process [Unknown]

NARRATIVE: CASE EVENT DATE: 20190731
